FAERS Safety Report 9438071 (Version 1)
Quarter: 2013Q3

REPORT INFORMATION
  Report Type: Other
  Country: TW (occurrence: TW)
  Receive Date: 20130802
  Receipt Date: 20130802
  Transmission Date: 20140515
  Serious: Yes (Hospitalization)
  Sender: FDA-Public Use
  Company Number: TW-BRISTOL-MYERS SQUIBB COMPANY-19159623

PATIENT
  Age: 65 Year
  Sex: Female

DRUGS (3)
  1. METFORMIN HCL [Suspect]
     Indication: TYPE 2 DIABETES MELLITUS
     Route: 048
  2. SODIUM PHOSPHATE [Suspect]
     Indication: COLONOSCOPY
     Route: 048
  3. INSULIN [Suspect]
     Indication: DIABETES MELLITUS

REACTIONS (2)
  - Renal failure acute [Recovered/Resolved]
  - Lactic acidosis [Recovered/Resolved]
